FAERS Safety Report 5044308-8 (Version None)
Quarter: 2006Q3

REPORT INFORMATION
  Report Type: 
  Country: None (occurrence: None)
  Receive Date: 20060706
  Receipt Date: 20060628
  Transmission Date: 20061208
  Serious: Yes (Other)
  Sender: FDA-Public Use
  Company Number: 2006SE03657

PATIENT
  Sex: Male

DRUGS (2)
  1. SEROQUEL [Suspect]
     Indication: BIPOLAR DISORDER
     Dosage: 25 MG IN THE MORNING+25 MG DAYTIME+ 50 MG AT NIGHT
     Route: 048
     Dates: start: 20060612
  2. LAMICTAL [Concomitant]

REACTIONS (7)
  - AMNESIA [None]
  - ANXIETY [None]
  - DEPRESSION [None]
  - DISTURBANCE IN ATTENTION [None]
  - DIZZINESS [None]
  - HEADACHE [None]
  - MALAISE [None]
